FAERS Safety Report 14289594 (Version 1)
Quarter: 2017Q4

REPORT INFORMATION
  Report Type: Spontaneous
  Country: FR (occurrence: FR)
  Receive Date: 20171215
  Receipt Date: 20171215
  Transmission Date: 20180321
  Serious: Yes (Disabling)
  Sender: FDA-Public Use
  Company Number: FR-009507513-1712FRA004033

PATIENT
  Age: 16 Year
  Sex: Female

DRUGS (2)
  1. STROMECTOL [Suspect]
     Active Substance: IVERMECTIN
     Indication: ACARODERMATITIS
     Dosage: UNK
     Route: 003
     Dates: start: 2017
  2. SPREGAL [Suspect]
     Active Substance: PIPERONYL BUTOXIDE\S-BIOALLETHRIN
     Indication: ACARODERMATITIS
     Dosage: APPLIED ON THE WHOLE BODY EXCEPT FACE AND BACK
     Route: 003
     Dates: start: 2017

REACTIONS (5)
  - Eczema [Not Recovered/Not Resolved]
  - C-reactive protein increased [Unknown]
  - Inflammation [Unknown]
  - Application site plaque [Not Recovered/Not Resolved]
  - Red blood cell sedimentation rate increased [Unknown]

NARRATIVE: CASE EVENT DATE: 2017
